FAERS Safety Report 20426438 (Version 1)
Quarter: 2022Q1

REPORT INFORMATION
  Report Type: Report from Study
  Country: US (occurrence: US)
  Receive Date: 20220204
  Receipt Date: 20220204
  Transmission Date: 20220423
  Serious: No
  Sender: FDA-Public Use
  Company Number: US-EXELIXIS-CABO-21042736

PATIENT
  Sex: Male
  Weight: 74.889 kg

DRUGS (1)
  1. CABOMETYX [Suspect]
     Active Substance: CABOZANTINIB S-MALATE
     Indication: Renal cancer
     Dosage: 40 MG, QD
     Route: 048
     Dates: start: 20210701, end: 202109

REACTIONS (10)
  - Nasal dryness [Unknown]
  - Abdominal discomfort [Unknown]
  - Oral discomfort [Unknown]
  - Back pain [Unknown]
  - Pain [Unknown]
  - Nausea [Unknown]
  - Fatigue [Unknown]
  - Dry skin [Unknown]
  - Abdominal pain [Unknown]
  - Malignant neoplasm progression [Unknown]
